FAERS Safety Report 19737603 (Version 1)
Quarter: 2021Q3

REPORT INFORMATION
  Report Type: Spontaneous
  Country: DE (occurrence: DE)
  Receive Date: 20210823
  Receipt Date: 20210823
  Transmission Date: 20211014
  Serious: Yes (Death, Other)
  Sender: FDA-Public Use
  Company Number: DE-GLAXOSMITHKLINE-DE2021EME173956

PATIENT
  Sex: Female

DRUGS (1)
  1. JEMPERLI [Suspect]
     Active Substance: DOSTARLIMAB-GXLY
     Indication: PRODUCT USED FOR UNKNOWN INDICATION
     Dosage: 500 MG (500MG KONZ. F. LNFLSG)

REACTIONS (1)
  - Death [Fatal]
